FAERS Safety Report 6986602-7 (Version None)
Quarter: 2010Q3

REPORT INFORMATION
  Report Type: 
  Country: None (occurrence: None)
  Receive Date: 20100827
  Receipt Date: 20100623
  Transmission Date: 20110219
  Serious: Yes (Hospitalization)
  Sender: FDA-Public Use
  Company Number: AMAG201000281

PATIENT
  Age: 56 Year
  Sex: Female
  Weight: 78.8 kg

DRUGS (3)
  1. FERAHEME [Suspect]
     Indication: IRON DEFICIENCY ANAEMIA
     Dosage: 510MG, SINGLE, INTRAVENOUS; 510 MG, SINGLE, INTRAVENOUS
     Route: 042
     Dates: start: 20100524, end: 20100524
  2. FERAHEME [Suspect]
     Indication: IRON DEFICIENCY ANAEMIA
     Dosage: 510MG, SINGLE, INTRAVENOUS; 510 MG, SINGLE, INTRAVENOUS
     Route: 042
     Dates: start: 20100601, end: 20100601
  3. IBUPROFEN [Concomitant]

REACTIONS (7)
  - ANAPHYLACTIC REACTION [None]
  - CHEST DISCOMFORT [None]
  - COUGH [None]
  - FLUSHING [None]
  - NAUSEA [None]
  - PRURITUS [None]
  - VOMITING [None]
